FAERS Safety Report 7337011-2 (Version None)
Quarter: 2011Q1

REPORT INFORMATION
  Report Type: 
  Country: None (occurrence: None)
  Receive Date: 20110224
  Receipt Date: 20110214
  Transmission Date: 20110831
  Serious: Yes (Hospitalization, Other)
  Sender: FDA-Public Use
  Company Number: CERZ-1000565

PATIENT
  Age: 51 Year
  Sex: Female
  Weight: 71.8 kg

DRUGS (6)
  1. LOVASTATIN [Concomitant]
  2. CEREZYME [Suspect]
     Indication: GAUCHER'S DISEASE
     Dosage: 60 U/KG, Q2W, INTRAVENOUS
     Route: 042
     Dates: start: 20081105
  3. PREDNISONE TAB [Concomitant]
  4. LEVOXYL [Concomitant]
  5. PROZAC [Concomitant]
  6. DYAZIDE [Concomitant]

REACTIONS (10)
  - MYELOFIBROSIS [None]
  - GAUCHER'S DISEASE [None]
  - GASTROINTESTINAL DISORDER [None]
  - MYELODYSPLASTIC SYNDROME [None]
  - HYPOTENSION [None]
  - SPLENIC INFARCTION [None]
  - BONE MARROW TRANSPLANT [None]
  - SPLENOMEGALY [None]
  - CARDIAC MURMUR [None]
  - DISEASE PROGRESSION [None]
